FAERS Safety Report 5005719-X (Version None)
Quarter: 2006Q2

REPORT INFORMATION
  Report Type: 
  Country: None (occurrence: None)
  Receive Date: 20060515
  Receipt Date: 20060503
  Transmission Date: 20061013
  Serious: Yes (Other)
  Sender: FDA-Public Use
  Company Number: HQWYE106221DEC05

PATIENT
  Age: 22 Year
  Sex: Female

DRUGS (9)
  1. CYCLOSPORINE [Suspect]
     Indication: PROPHYLAXIS AGAINST TRANSPLANT REJECTION
     Dosage: SEE IMAGE
     Route: 048
     Dates: start: 20051212, end: 20051215
  2. CYCLOSPORINE [Suspect]
     Indication: PROPHYLAXIS AGAINST TRANSPLANT REJECTION
     Dosage: SEE IMAGE
     Route: 048
     Dates: start: 20051222
  3. DELTA-CORTEF [Concomitant]
  4. CO-TRIMAZOLE ^DAKOTA PHARM^ (SULFAMETHOXAZOLE/TRIMETHOPRIM) [Concomitant]
  5. ACYCLOVIR [Concomitant]
  6. DIURETICS (DIURETICS) [Concomitant]
  7. UNPSECIFIED BETA BLOCKER (UNSPECIFIED BETA BLOCKER) [Concomitant]
  8. UNSPECIFIED CALCIUM CHANNEL BLOCKER (UNSPECIFIED CALCIUM CHANNEL BLOCK [Concomitant]
  9. CELLCEPT [Concomitant]

REACTIONS (7)
  - COMPLICATIONS OF TRANSPLANTED KIDNEY [None]
  - KIDNEY FIBROSIS [None]
  - KIDNEY TRANSPLANT REJECTION [None]
  - OEDEMA [None]
  - RENAL DISORDER [None]
  - RENAL TUBULAR ATROPHY [None]
  - TUBULOINTERSTITIAL NEPHRITIS [None]
